FAERS Safety Report 12810922 (Version 1)
Quarter: 2016Q4

REPORT INFORMATION
  Report Type: Spontaneous
  Country: US (occurrence: US)
  Receive Date: 20161004
  Receipt Date: 20161004
  Transmission Date: 20170207
  Serious: Yes (Other)
  Sender: FDA-Public Use
  Company Number: None

PATIENT
  Age: 64 Year
  Sex: Male
  Weight: 107.55 kg

DRUGS (6)
  1. CEFUROXIME. [Concomitant]
     Active Substance: CEFUROXIME
  2. LIDOCAINE-PHENY- LEPHRINE PF LEITERS COMPOUNDING [Suspect]
     Active Substance: LIDOCAINE\PHENYLEPHRINE
     Indication: CATARACT OPERATION
     Route: 031
     Dates: start: 20160919
  3. BSS [Concomitant]
     Active Substance: CALCIUM CHLORIDE\MAGNESIUM CHLORIDE\POTASSIUM CHLORIDE\SODIUM ACETATE\SODIUM CHLORIDE\SODIUM CITRATE
  4. VISCOAT 0.5 OPHTHALMIC VISCOELASTIC SUBSTANCE [Concomitant]
     Active Substance: CHONDROITIN SULFATE A\HYALURONATE SODIUM
  5. ALCON (RETINOL\TOCOPHEROL) [Concomitant]
     Active Substance: RETINOL\TOCOPHEROL
  6. POVIDONE-IODINE. [Concomitant]
     Active Substance: POVIDONE-IODINE

REACTIONS (3)
  - Toxic anterior segment syndrome [None]
  - Product compounding quality issue [None]
  - Product use issue [None]

NARRATIVE: CASE EVENT DATE: 20160919
